FAERS Safety Report 16205324 (Version 1)
Quarter: 2019Q2

REPORT INFORMATION
  Report Type: Spontaneous
  Country: US (occurrence: US)
  Receive Date: 20190417
  Receipt Date: 20190417
  Transmission Date: 20190711
  Serious: Yes (Hospitalization, Other)
  Sender: FDA-Public Use
  Company Number: US-AMGEN-USASP2019057935

PATIENT
  Age: 70 Year
  Sex: Female

DRUGS (5)
  1. PROLIA [Suspect]
     Active Substance: DENOSUMAB
     Indication: OSTEOPOROSIS
     Dosage: 60 MILLIGRAM, Q6MO
     Route: 065
     Dates: start: 2016
  2. CALCIUM [Concomitant]
     Active Substance: CALCIUM
     Dosage: UNK UNK, QD
  3. CENTRUM SILVER [ASCORBIC ACID;BIOTIN;CALCIUM;CALCIUM PHOSPHATE DIBASIC [Concomitant]
     Dosage: UNK UNK, QD
  4. VITAMIN D [COLECALCIFEROL] [Concomitant]
     Active Substance: CHOLECALCIFEROL
     Dosage: UNK UNK, QD
  5. FORTEO [Concomitant]
     Active Substance: TERIPARATIDE
     Dosage: UNK UNK, QD

REACTIONS (4)
  - Accident [Unknown]
  - Fall [Unknown]
  - Hip fracture [Recovering/Resolving]
  - Upper limb fracture [Recovering/Resolving]

NARRATIVE: CASE EVENT DATE: 2019
